FAERS Safety Report 18351055 (Version 1)
Quarter: 2020Q4

REPORT INFORMATION
  Report Type: Spontaneous
  Country: DE (occurrence: DE)
  Receive Date: 20201006
  Receipt Date: 20201006
  Transmission Date: 20210114
  Serious: Yes (Other)
  Sender: FDA-Public Use
  Company Number: DE-SA-2020SA272635

PATIENT

DRUGS (7)
  1. RISPERIDONE. [Suspect]
     Active Substance: RISPERIDONE
     Indication: DELUSION
     Dosage: UP TO 1.5 MG/DAY
  2. OLANZAPINE. [Interacting]
     Active Substance: OLANZAPINE
     Dosage: 10 MG, QD
  3. NICOTINE. [Suspect]
     Active Substance: NICOTINE
     Dosage: UNK
     Route: 062
  4. ATORVASTATIN [Concomitant]
     Active Substance: ATORVASTATIN
     Dosage: 10 MG, QD
     Route: 048
  5. AMISULPRIDE [Suspect]
     Active Substance: AMISULPRIDE
     Indication: DELUSION
     Dosage: 200 MG, BID
     Route: 048
  6. RIVASTIGMINE. [Concomitant]
     Active Substance: RIVASTIGMINE
     Dosage: 9.5 G, QD
     Route: 062
  7. OLANZAPINE. [Interacting]
     Active Substance: OLANZAPINE
     Indication: DELUSION
     Dosage: 15 MG, QD
     Route: 048

REACTIONS (4)
  - Overdose [Unknown]
  - Transaminases increased [Unknown]
  - Tobacco interaction [Unknown]
  - Electrocardiogram QT prolonged [Recovering/Resolving]
